FAERS Safety Report 10691232 (Version 1)
Quarter: 2015Q1

REPORT INFORMATION
  Report Type: Other
  Country: FR (occurrence: FR)
  Receive Date: 20150105
  Receipt Date: 20150105
  Transmission Date: 20150720
  Serious: Yes (Other)
  Sender: FDA-Public Use
  Company Number: FR-MYLANLABS-2014M1015586

PATIENT

DRUGS (8)
  1. CEFUROXIME PANPHARMA [Suspect]
     Active Substance: CEFUROXIME
     Indication: CITROBACTER INFECTION
     Dosage: 1.5 G, QOD
     Route: 042
     Dates: start: 20140127, end: 20140127
  2. FOZIRETIC [Concomitant]
     Active Substance: FOSINOPRIL SODIUM\HYDROCHLOROTHIAZIDE
     Indication: PRODUCT USED FOR UNKNOWN INDICATION
     Dosage: 1 DF, QD
  3. PLAVIX [Concomitant]
     Active Substance: CLOPIDOGREL BISULFATE
  4. DOLIPRANE [Concomitant]
     Active Substance: ACETAMINOPHEN
  5. SPIRIVA [Concomitant]
     Active Substance: TIOTROPIUM BROMIDE MONOHYDRATE
     Indication: PRODUCT USED FOR UNKNOWN INDICATION
     Dosage: 18 ?G, QD
  6. VANCOMYCINE MYLAN [Suspect]
     Active Substance: VANCOMYCIN
     Indication: CITROBACTER INFECTION
     Dosage: 2 G, ONCE
     Route: 042
     Dates: start: 20140127, end: 20140127
  7. LERCAN [Concomitant]
     Active Substance: LERCANIDIPINE
     Indication: PRODUCT USED FOR UNKNOWN INDICATION
     Dosage: 10 MG, BID
  8. CEFOTAXIME [Suspect]
     Active Substance: CEFOTAXIME\CEFOTAXIME SODIUM
     Indication: CITROBACTER INFECTION
     Dosage: 2 G, UNK
     Route: 042
     Dates: start: 20140127, end: 20140128

REACTIONS (4)
  - Dermatitis exfoliative [Recovered/Resolved]
  - Hyperthermia [Recovered/Resolved]
  - Acute kidney injury [Recovered/Resolved]
  - Hypotension [Recovered/Resolved]

NARRATIVE: CASE EVENT DATE: 20140127
